FAERS Safety Report 6687389-8 (Version None)
Quarter: 2010Q2

REPORT INFORMATION
  Report Type: 
  Country: None (occurrence: None)
  Receive Date: 20100416
  Receipt Date: 20100416
  Transmission Date: 20101027
  Serious: Yes (Death)
  Sender: FDA-Public Use
  Company Number: None

PATIENT
  Sex: Male
  Weight: 88.4514 kg

DRUGS (1)
  1. SINGULAIR [Suspect]
     Indication: ANGIOEDEMA
     Dosage: 10MG DAILY ORALLY/047
     Route: 048
     Dates: start: 20100123, end: 20100320

REACTIONS (2)
  - ASPHYXIA [None]
  - COMPLETED SUICIDE [None]
